FAERS Safety Report 6924121-4 (Version None)
Quarter: 2010Q3

REPORT INFORMATION
  Report Type: 
  Country: None (occurrence: None)
  Receive Date: 20100813
  Receipt Date: 20100805
  Transmission Date: 20110219
  Serious: Yes (Other)
  Sender: FDA-Public Use
  Company Number: GB-ABBOTT-10P-167-0661863-00

PATIENT
  Age: 37 Year
  Sex: Female

DRUGS (3)
  1. NORVIR [Suspect]
     Indication: ANTIRETROVIRAL THERAPY
     Dosage: 100 MG DAILY DOSE
     Route: 048
     Dates: start: 20090406
  2. EMTRICITABINE/TENOFOVIR DISOPROXIL FUMARATE [Suspect]
     Indication: ANTIRETROVIRAL THERAPY
     Route: 048
     Dates: start: 20090406
  3. SAQUINAVIR MESILATE [Suspect]
     Indication: ANTIRETROVIRAL THERAPY
     Dosage: 2000 MG DAILY DOSE
     Route: 048
     Dates: start: 20090406

REACTIONS (1)
  - HAEMOGLOBIN DECREASED [None]
